FAERS Safety Report 25443142 (Version 1)
Quarter: 2025Q2

REPORT INFORMATION
  Report Type: Spontaneous
  Country: JP (occurrence: JP)
  Receive Date: 20250617
  Receipt Date: 20250617
  Transmission Date: 20250716
  Serious: Yes (Other)
  Sender: NOVARTIS
  Company Number: JP-002147023-NVSJ2023JP013261

PATIENT
  Age: 55 Year
  Sex: Female

DRUGS (2)
  1. IMATINIB [Suspect]
     Active Substance: IMATINIB
     Indication: Chronic myeloid leukaemia
     Route: 048
  2. IMATINIB [Suspect]
     Active Substance: IMATINIB
     Route: 048

REACTIONS (5)
  - Rheumatoid arthritis [Recovering/Resolving]
  - Muscular weakness [Unknown]
  - Withdrawal syndrome [Unknown]
  - Musculoskeletal stiffness [Recovered/Resolved]
  - Arthralgia [Recovering/Resolving]
